FAERS Safety Report 8027616-8 (Version None)
Quarter: 2012Q1

REPORT INFORMATION
  Report Type: 
  Country: None (occurrence: None)
  Receive Date: 20120105
  Receipt Date: 20120105
  Transmission Date: 20120608
  Serious: No
  Sender: FDA-Public Use
  Company Number: None

PATIENT
  Age: 72 Year
  Sex: Male
  Weight: 88.2 kg

DRUGS (1)
  1. DABIGATRAN [Suspect]
     Indication: DEEP VEIN THROMBOSIS
     Dosage: MG BID PO
     Route: 048
     Dates: start: 20111123, end: 20111126

REACTIONS (3)
  - URTICARIA [None]
  - RASH MORBILLIFORM [None]
  - PRURITUS [None]
